FAERS Safety Report 10287184 (Version 2)
Quarter: 2014Q3

REPORT INFORMATION
  Report Type: Spontaneous
  Country: IT (occurrence: IT)
  Receive Date: 20140709
  Receipt Date: 20140804
  Transmission Date: 20150326
  Serious: Yes (Other)
  Sender: FDA-Public Use
  Company Number: IT-ELI_LILLY_AND_COMPANY-IT201407000715

PATIENT
  Age: 80 Year
  Sex: Male

DRUGS (6)
  1. CIALIS [Suspect]
     Active Substance: TADALAFIL
     Dosage: UNK
     Route: 065
     Dates: start: 20140626
  2. CIALIS [Suspect]
     Active Substance: TADALAFIL
     Dosage: 10 MG, PRN
     Route: 065
     Dates: start: 2012
  3. PRAVASELECT [Concomitant]
  4. CIALIS [Suspect]
     Active Substance: TADALAFIL
     Indication: PRODUCT USED FOR UNKNOWN INDICATION
     Dosage: 10 MG, PRN
     Route: 065
     Dates: start: 2004
  5. CARDIOASPIRIN [Concomitant]
     Active Substance: ASPIRIN
  6. CIALIS [Suspect]
     Active Substance: TADALAFIL
     Dosage: 5 MG, QD
     Route: 065
     Dates: start: 2012

REACTIONS (6)
  - Maculopathy [Unknown]
  - Vision blurred [Unknown]
  - Eye disorder [Recovering/Resolving]
  - Retinitis [Unknown]
  - Drug ineffective [Unknown]
  - Headache [Unknown]
